FAERS Safety Report 14035919 (Version 1)
Quarter: 2017Q4

REPORT INFORMATION
  Report Type: Report from Study
  Country: US (occurrence: US)
  Receive Date: 20171003
  Receipt Date: 20171003
  Transmission Date: 20180321
  Serious: No
  Sender: FDA-Public Use
  Company Number: US-AMGEN-USASL2017090765

PATIENT
  Sex: Female

DRUGS (2)
  1. XGEVA [Suspect]
     Active Substance: DENOSUMAB
     Indication: METASTASES TO LUNG
  2. XGEVA [Suspect]
     Active Substance: DENOSUMAB
     Indication: AGRANULOCYTOSIS
     Dosage: UNK
     Route: 065

REACTIONS (1)
  - Off label use [Unknown]
